FAERS Safety Report 19785453 (Version 2)
Quarter: 2021Q3

REPORT INFORMATION
  Report Type: Other
  Country: FR (occurrence: FR)
  Receive Date: 20210903
  Receipt Date: 20210929
  Transmission Date: 20211014
  Serious: Yes (Death, Hospitalization)
  Sender: FDA-Public Use
  Company Number: FR-ROCHE-2903439

PATIENT
  Age: 61 Year
  Sex: Female

DRUGS (4)
  1. RITUXIMAB. [Suspect]
     Active Substance: RITUXIMAB
     Indication: WALDENSTROM^S MACROGLOBULINAEMIA
     Route: 065
  2. ANAKINRA [Concomitant]
     Active Substance: ANAKINRA
  3. IBRUTINIB [Concomitant]
     Active Substance: IBRUTINIB
  4. BENDAMUSTINE [Suspect]
     Active Substance: BENDAMUSTINE
     Indication: WALDENSTROM^S MACROGLOBULINAEMIA
     Route: 065

REACTIONS (3)
  - COVID-19 [Unknown]
  - Pneumonia fungal [Fatal]
  - Pancytopenia [Unknown]
